FAERS Safety Report 19450135 (Version 4)
Quarter: 2022Q3

REPORT INFORMATION
  Report Type: Report from Study
  Country: JP (occurrence: JP)
  Receive Date: 20210622
  Receipt Date: 20220722
  Transmission Date: 20221026
  Serious: Yes (Hospitalization)
  Sender: FDA-Public Use
  Company Number: JP-ABBVIE-21K-087-3844531-00

PATIENT
  Sex: Male

DRUGS (2)
  1. CARBIDOPA\LEVODOPA [Suspect]
     Active Substance: CARBIDOPA\LEVODOPA
     Indication: Parkinson^s disease
     Route: 050
     Dates: start: 20210303, end: 2021
  2. CARBIDOPA\LEVODOPA [Suspect]
     Active Substance: CARBIDOPA\LEVODOPA

REACTIONS (9)
  - Fracture [Unknown]
  - Fall [Unknown]
  - Gait disturbance [Unknown]
  - On and off phenomenon [Not Recovered/Not Resolved]
  - Parkinsonian gait [Unknown]
  - Drug ineffective [Unknown]
  - Stoma site discharge [Unknown]
  - Stoma site extravasation [Unknown]
  - Stoma site odour [Unknown]

NARRATIVE: CASE EVENT DATE: 20210101
